FAERS Safety Report 9261315 (Version 1)
Quarter: 2013Q2

REPORT INFORMATION
  Report Type: Spontaneous
  Country: US (occurrence: US)
  Receive Date: 20130429
  Receipt Date: 20130429
  Transmission Date: 20140414
  Serious: Yes (Other)
  Sender: FDA-Public Use
  Company Number: US-PFIZER INC-2013130355

PATIENT
  Age: 58 Year
  Sex: Female
  Weight: 50.79 kg

DRUGS (8)
  1. LYRICA [Suspect]
     Indication: NEURALGIA
     Dosage: 25 MG, 3X/DAY
     Route: 048
     Dates: start: 201303, end: 2013
  2. LYRICA [Suspect]
     Indication: ANXIETY
     Dosage: 25 MG, AS NEEDED
     Route: 048
     Dates: start: 2013
  3. GABAPENTIN [Suspect]
     Dosage: UNK, AS NEEDED
  4. MELATONIN [Concomitant]
     Indication: SLEEP DISORDER
     Dosage: UNK
  5. SOMA [Concomitant]
     Dosage: 350 MG, 4X/DAY
  6. ATIVAN [Concomitant]
     Dosage: 8MG WHICH SHE TAPERED OFF TO 2.5MG
  7. VALIUM [Concomitant]
     Dosage: 80MG WHICH SHE TAPERED OFF TO 25MG
  8. FENTANYL [Concomitant]
     Dosage: 100 UG, 1X/DAY
     Dates: start: 2012

REACTIONS (9)
  - Impaired driving ability [Unknown]
  - Drug intolerance [Unknown]
  - Sedation [Unknown]
  - Phobia of driving [Unknown]
  - Somnolence [Unknown]
  - Feeling abnormal [Unknown]
  - Drug ineffective [Unknown]
  - Nausea [Unknown]
  - Initial insomnia [Unknown]
